FAERS Safety Report 10672671 (Version 1)
Quarter: 2014Q4

REPORT INFORMATION
  Report Type: Spontaneous
  Country: US (occurrence: US)
  Receive Date: 20141223
  Receipt Date: 20141223
  Transmission Date: 20150529
  Serious: Yes (Death, Other)
  Sender: FDA-Public Use
  Company Number: US-GLAXOSMITHKLINE-US2014040396

PATIENT
  Age: 54 Year
  Sex: Male

DRUGS (8)
  1. MORPHINE [Concomitant]
     Active Substance: MORPHINE
  2. PROMACTA [Suspect]
     Active Substance: ELTROMBOPAG OLAMINE
     Indication: THROMBOCYTOPENIA
     Dosage: 50 MG, 1D
     Dates: start: 201411
  3. ACYCLOVIR. [Concomitant]
     Active Substance: ACYCLOVIR
  4. GABAPENTIN. [Concomitant]
     Active Substance: GABAPENTIN
  5. FINASTERIDE. [Concomitant]
     Active Substance: FINASTERIDE
  6. FILGRASTIM [Concomitant]
     Active Substance: FILGRASTIM
  7. LORAZEPAM. [Concomitant]
     Active Substance: LORAZEPAM
  8. NYSTATIN. [Concomitant]
     Active Substance: NYSTATIN

REACTIONS (1)
  - Plasma cell leukaemia [Fatal]

NARRATIVE: CASE EVENT DATE: 20141102
